FAERS Safety Report 25317623 (Version 1)
Quarter: 2025Q2

REPORT INFORMATION
  Report Type: Spontaneous
  Country: IT (occurrence: IT)
  Receive Date: 20250515
  Receipt Date: 20250515
  Transmission Date: 20250717
  Serious: No
  Sender: ALKEM
  Company Number: IT-ALKEM LABORATORIES LIMITED-IT-ALKEM-2024-16408

PATIENT
  Age: 40 Year
  Sex: Female

DRUGS (7)
  1. AZATHIOPRINE [Suspect]
     Active Substance: AZATHIOPRINE
     Indication: Myasthenia gravis
     Dosage: 50 MILLIGRAM, QD AT BASE LINE
     Route: 065
  2. AZATHIOPRINE [Suspect]
     Active Substance: AZATHIOPRINE
     Dosage: 100 MILLIGRAM, QD AT 3 MONTHS
     Route: 065
  3. AZATHIOPRINE [Suspect]
     Active Substance: AZATHIOPRINE
     Dosage: 150 MILLIGRAM, QD (6 AND 18 MONTHS)
     Route: 065
  4. PYRIDOSTIGMINE BROMIDE [Suspect]
     Active Substance: PYRIDOSTIGMINE BROMIDE
     Indication: Myasthenia gravis
     Dosage: 120 MILLIGRAM, QD AT BASE LINE
     Route: 065
  5. PREDNISONE [Suspect]
     Active Substance: PREDNISONE
     Indication: Myasthenia gravis
     Dosage: 100 MILLIGRAM, QD AT BASELINE
     Route: 065
  6. PREDNISONE [Suspect]
     Active Substance: PREDNISONE
     Dosage: 62.5 MILLIGRAM, QD AT 3 MONTHS
     Route: 065
  7. PREDNISONE [Suspect]
     Active Substance: PREDNISONE
     Dosage: 50/40 MILLIGRAM,QD AT 6 MONTHS
     Route: 065

REACTIONS (24)
  - Menstruation irregular [Unknown]
  - Hair growth abnormal [Unknown]
  - Pain [Unknown]
  - Erythema [Unknown]
  - Peripheral swelling [Unknown]
  - Palpitations [Unknown]
  - Eye irritation [Unknown]
  - Sensory disturbance [Unknown]
  - Stomatitis [Unknown]
  - Weight increased [Unknown]
  - Vision blurred [Unknown]
  - Dyspnoea [Unknown]
  - Drug intolerance [Unknown]
  - Depressed mood [Unknown]
  - Abdominal pain upper [Unknown]
  - Alopecia [Unknown]
  - Arthralgia [Unknown]
  - Conjunctivitis [Unknown]
  - Cystitis [Unknown]
  - Fungal infection [Unknown]
  - Infection [Unknown]
  - Malaise [Unknown]
  - Rash [Unknown]
  - Vomiting [Unknown]
